FAERS Safety Report 6647757-7 (Version None)
Quarter: 2010Q1

REPORT INFORMATION
  Report Type: 
  Country: None (occurrence: None)
  Receive Date: 20100324
  Receipt Date: 20100317
  Transmission Date: 20100710
  Serious: Yes (Other)
  Sender: FDA-Public Use
  Company Number: US-ASTRAZENECA-2010SE07709

PATIENT
  Sex: Male
  Weight: 111.1 kg

DRUGS (17)
  1. SEROQUEL [Suspect]
     Route: 048
     Dates: start: 20050818, end: 20060424
  2. RISPERDAL [Suspect]
     Indication: DEPRESSION
     Dates: start: 20070716, end: 20080508
  3. RISPERDAL [Suspect]
     Indication: MAJOR DEPRESSION
     Dates: start: 20070716, end: 20080508
  4. RISPERDAL [Suspect]
     Dosage: 0.5 MG TO 1 MG
     Dates: start: 20070315, end: 20080505
  5. RISPERDAL [Suspect]
     Dosage: 0.5 MG TO 1 MG
     Dates: start: 20070315, end: 20080505
  6. LAMICTAL CD [Concomitant]
  7. XANAX [Concomitant]
     Dosage: 0.25 MG AS NEEDED- 3 AT BEDTIME
  8. LITHIUM [Concomitant]
  9. CYTOMEL [Concomitant]
  10. LEXAPRO [Concomitant]
  11. ZOLOFT [Concomitant]
     Dates: start: 20050101, end: 20060823
  12. REMERON [Concomitant]
     Dates: start: 20060424, end: 20070212
  13. EFFEXOR [Concomitant]
     Dates: start: 20060823, end: 20070509
  14. BENZTROPINE MESYLATE [Concomitant]
     Dates: start: 20080401, end: 20080724
  15. CLONAZEPAM [Concomitant]
     Dates: start: 20060807, end: 20060823
  16. ABILIFY [Concomitant]
     Dates: start: 20080505, end: 20080709
  17. STELAZINE [Concomitant]

REACTIONS (13)
  - AKATHISIA [None]
  - ANXIETY [None]
  - BLEPHAROSPASM [None]
  - BREAST TENDERNESS [None]
  - DYSKINESIA [None]
  - DYSTONIA [None]
  - GYNAECOMASTIA [None]
  - HYPERPROLACTINAEMIA [None]
  - PROTRUSION TONGUE [None]
  - SPEECH DISORDER [None]
  - SUICIDAL IDEATION [None]
  - TARDIVE DYSKINESIA [None]
  - THROAT TIGHTNESS [None]
